FAERS Safety Report 23721075 (Version 1)
Quarter: 2024Q2

REPORT INFORMATION
  Report Type: Report from Study
  Country: US (occurrence: None)
  Receive Date: 20240409
  Receipt Date: 20240409
  Transmission Date: 20240716
  Serious: Yes (Death)
  Sender: FDA-Public Use
  Company Number: 2022A406224

PATIENT
  Age: 1093 Month

DRUGS (1)
  1. FARXIGA [Suspect]
     Active Substance: DAPAGLIFLOZIN PROPANEDIOL
     Route: 048

REACTIONS (4)
  - Cardiac disorder [Fatal]
  - Blood disorder [Fatal]
  - Oesophageal disorder [Fatal]
  - Dysphagia [Fatal]

NARRATIVE: CASE EVENT DATE: 20220901
